FAERS Safety Report 6659608-5 (Version None)
Quarter: 2010Q1

REPORT INFORMATION
  Report Type: 
  Country: None (occurrence: None)
  Receive Date: 20100330
  Receipt Date: 20100319
  Transmission Date: 20100710
  Serious: Yes (Other)
  Sender: FDA-Public Use
  Company Number: GB-PFIZER INC-2010035352

PATIENT
  Age: 33 Year
  Sex: Male
  Weight: 70 kg

DRUGS (2)
  1. CHAMPIX [Suspect]
     Indication: EX-TOBACCO USER
     Dosage: 1 MG, 2X/DAY
     Route: 048
     Dates: start: 20100210, end: 20100303
  2. OMEPRAZOLE [Concomitant]
     Dosage: 20 MG, AS NEEDED
     Route: 048

REACTIONS (4)
  - ABDOMINAL DISCOMFORT [None]
  - FALL [None]
  - HYPERHIDROSIS [None]
  - SYNCOPE [None]
